FAERS Safety Report 9463803 (Version 2)
Quarter: 2013Q3

REPORT INFORMATION
  Report Type: Spontaneous
  Country: CA (occurrence: CA)
  Receive Date: 20130819
  Receipt Date: 20130920
  Transmission Date: 20140515
  Serious: Yes (Hospitalization, Other)
  Sender: FDA-Public Use
  Company Number: CA-ASTELLAS-2013US008550

PATIENT
  Age: 64 Year
  Sex: Female

DRUGS (1)
  1. ADVAGRAF [Suspect]
     Indication: RENAL TRANSPLANT
     Dosage: UNK
     Route: 065

REACTIONS (2)
  - Thrombosis in device [Unknown]
  - Clostridium difficile infection [Unknown]
